FAERS Safety Report 6721702-8 (Version None)
Quarter: 2010Q2

REPORT INFORMATION
  Report Type: 
  Country: None (occurrence: None)
  Receive Date: 20100512
  Receipt Date: 20100510
  Transmission Date: 20101027
  Serious: Yes (Death, Life-Threatening, Other)
  Sender: FDA-Public Use
  Company Number: NL-ROXANE LABORATORIES, INC.-2010-RO-00553RO

PATIENT
  Age: 49 Year
  Sex: Female

DRUGS (8)
  1. DEXAMETHASONE [Suspect]
     Indication: MULTIPLE MYELOMA
  2. MORPHINE [Suspect]
     Indication: PAIN
  3. LEVOTHYROXINE SODIUM [Suspect]
  4. BISPHOSPHONATES [Suspect]
     Indication: HYPERCALCAEMIA
  5. VINCRISTINE [Suspect]
     Indication: MULTIPLE MYELOMA
  6. DOXORUBICIN HCL [Suspect]
     Indication: MULTIPLE MYELOMA
  7. PARACETAMOL [Suspect]
     Indication: PAIN
  8. METAMIZOL [Suspect]
     Indication: PAIN

REACTIONS (5)
  - CONSTIPATION [None]
  - DEATH [None]
  - DRUG INEFFECTIVE [None]
  - GASTROINTESTINAL NECROSIS [None]
  - MESENTERIC ARTERY THROMBOSIS [None]
